FAERS Safety Report 9742314 (Version 2)
Quarter: 2013Q4

REPORT INFORMATION
  Report Type: Spontaneous
  Country: DE (occurrence: DE)
  Receive Date: 20131210
  Receipt Date: 20131210
  Transmission Date: 20140711
  Serious: Yes (Hospitalization, Other)
  Sender: FDA-Public Use
  Company Number: DE-ELI_LILLY_AND_COMPANY-DE201310007697

PATIENT
  Age: 81 Year
  Sex: Female

DRUGS (15)
  1. CYMBALTA [Suspect]
     Indication: PRODUCT USED FOR UNKNOWN INDICATION
     Dosage: 60 MG QD
     Route: 048
     Dates: start: 201101, end: 20130308
  2. CYMBALTA [Interacting]
     Dosage: 90 MG, QD
     Route: 048
     Dates: start: 20130309, end: 20130314
  3. CYMBALTA [Interacting]
     Dosage: 120 MG, QD
     Route: 048
     Dates: start: 20130315, end: 20130317
  4. CYMBALTA [Interacting]
     Dosage: 90 MG, QD
     Route: 048
     Dates: start: 20130318, end: 20130318
  5. MIRTAZAPIN [Interacting]
     Indication: PRODUCT USED FOR UNKNOWN INDICATION
     Dosage: UNK, UNKNOWN
     Route: 048
     Dates: start: 201301
  6. ALLOPURINOL [Interacting]
     Indication: PRODUCT USED FOR UNKNOWN INDICATION
     Dosage: UNK, UNKNOWN
     Route: 048
     Dates: start: 20130312, end: 20130319
  7. PANTOPRAZOL [Concomitant]
     Indication: PRODUCT USED FOR UNKNOWN INDICATION
     Dosage: 40 MG, QD
     Route: 048
     Dates: start: 201001, end: 20130320
  8. DOMPERIDON                         /00498201/ [Concomitant]
     Indication: PRODUCT USED FOR UNKNOWN INDICATION
     Dosage: 30 MG, QD
     Route: 048
     Dates: start: 20130321
  9. L-THYROXIN [Concomitant]
     Indication: PRODUCT USED FOR UNKNOWN INDICATION
     Dosage: 25 UG, QD
     Route: 048
     Dates: start: 201001
  10. ASS [Concomitant]
     Indication: PRODUCT USED FOR UNKNOWN INDICATION
     Dosage: 100 MG, QD
     Route: 048
  11. TORASEMID [Concomitant]
     Indication: PRODUCT USED FOR UNKNOWN INDICATION
     Dosage: 7.5 MG, QD
     Route: 048
     Dates: start: 20130309, end: 20130309
  12. TORASEMID [Concomitant]
     Dosage: 7.5 MG, QD
     Route: 048
     Dates: start: 20130321
  13. RAMIPRIL [Concomitant]
     Indication: PRODUCT USED FOR UNKNOWN INDICATION
     Dosage: 10 MG, UNKNOWN
     Route: 048
     Dates: end: 20130311
  14. RAMIPRIL [Concomitant]
     Dosage: 7.5 MG, QD
     Route: 048
     Dates: start: 20130312
  15. SIMVASTATIN [Concomitant]
     Indication: PRODUCT USED FOR UNKNOWN INDICATION
     Dosage: 20 MG, QD
     Route: 048
     Dates: start: 201301

REACTIONS (7)
  - Renal failure [Recovered/Resolved]
  - Autoimmune hepatitis [Recovered/Resolved]
  - Drug interaction [Recovered/Resolved]
  - Nausea [Recovered/Resolved]
  - Malaise [Recovered/Resolved]
  - Infection [Recovered/Resolved]
  - Gamma-glutamyltransferase abnormal [Recovered/Resolved]
